FAERS Safety Report 4415207-7 (Version None)
Quarter: 2004Q3

REPORT INFORMATION
  Report Type: 
  Country: None (occurrence: None)
  Receive Date: 20040729
  Receipt Date: 20040726
  Transmission Date: 20050211
  Serious: Yes (Hospitalization, Other)
  Sender: FDA-Public Use
  Company Number: US-JNJFOC-20040706706

PATIENT
  Age: 89 Year
  Sex: Female

DRUGS (15)
  1. LEVOFLOXACIN [Suspect]
     Indication: PNEUMONIA
     Dosage: INTRAVENOUS
     Route: 042
     Dates: start: 20040303, end: 20040304
  2. LEVOFLOXACIN [Suspect]
     Indication: PNEUMONIA
     Dosage: ORAL
     Route: 048
     Dates: start: 20040305, end: 20040309
  3. PLACEBO (PLACEBO) [Suspect]
     Indication: PNEUMONIA
     Dosage: INTRAVENOUS
     Route: 042
     Dates: start: 20040303, end: 20040304
  4. PLACEBO (PLACEBO) [Suspect]
     Indication: PNEUMONIA
     Dosage: ORAL
     Route: 048
     Dates: start: 20040305, end: 20040309
  5. SYNTHROID [Concomitant]
  6. MULTIVITAMIN (MULTIVITAMINS) [Concomitant]
  7. CALCIUM (CALCIUM) [Concomitant]
  8. QUININE SULFATE (QUININE SULFATE) [Concomitant]
  9. ASPIRIN [Concomitant]
  10. HEPARIN [Concomitant]
  11. PLAVIX [Concomitant]
  12. B12 (CYANOCOBALAMIN) [Concomitant]
  13. RESTORIL [Concomitant]
  14. ATENOLOL [Concomitant]
  15. LANOXIN [Concomitant]

REACTIONS (18)
  - AORTIC DISORDER [None]
  - ATRIAL FIBRILLATION [None]
  - CAROTID ARTERY STENOSIS [None]
  - CIRCULATORY COLLAPSE [None]
  - COMA [None]
  - COMPUTERISED TOMOGRAM ABNORMAL [None]
  - CONFUSIONAL STATE [None]
  - DEPRESSED LEVEL OF CONSCIOUSNESS [None]
  - DIFFICULTY IN WALKING [None]
  - DYSARTHRIA [None]
  - FACIAL PARESIS [None]
  - FATIGUE [None]
  - HEMIPARESIS [None]
  - MITRAL VALVE DISEASE [None]
  - PERNICIOUS ANAEMIA [None]
  - SUBCLAVIAN STEAL SYNDROME [None]
  - TRANSIENT ISCHAEMIC ATTACK [None]
  - YAWNING [None]
